FAERS Safety Report 5648623-6 (Version None)
Quarter: 2008Q1

REPORT INFORMATION
  Report Type: 
  Country: None (occurrence: None)
  Receive Date: 20080131
  Receipt Date: 20071009
  Transmission Date: 20080703
  Serious: No
  Sender: FDA-Public Use
  Company Number: US200707000479

PATIENT
  Age: 61 Year
  Sex: Male
  Weight: 115.6 kg

DRUGS (12)
  1. BYETTA [Suspect]
     Dosage: SUBCUTANEOUS
     Route: 058
     Dates: start: 20070521, end: 20070629
  2. EXENATIDE PEN, DISPOSABLE DEVICE (EXENATIDE PEN) [Concomitant]
  3. TOPROL-XL [Concomitant]
  4. CARTIA XT [Concomitant]
  5. ASPIRIN [Concomitant]
  6. FAMOTIDINE [Concomitant]
  7. RENA-VITE (ASCORBIC ACID, VITAMIN B NOS) [Concomitant]
  8. IRON (IRON) [Concomitant]
  9. QUINAPRIL HCL [Concomitant]
  10. AVANDIA [Concomitant]
  11. LIPITOR [Concomitant]
  12. FUROSEMIDE [Concomitant]

REACTIONS (3)
  - BLOOD CREATININE INCREASED [None]
  - BLOOD UREA INCREASED [None]
  - RENAL IMPAIRMENT [None]
